FAERS Safety Report 8888860 (Version 3)
Quarter: 2013Q2

REPORT INFORMATION
  Report Type: Report from Study
  Country: JP (occurrence: JP)
  Receive Date: 20121106
  Receipt Date: 20130617
  Transmission Date: 20140414
  Serious: Yes (Death)
  Sender: FDA-Public Use
  Company Number: JP-SHIRE-ALL1-2012-05408

PATIENT
  Age: 86 Year
  Sex: Female

DRUGS (10)
  1. 405 (LANTHANUM CARBONATE) [Suspect]
     Indication: HYPERPHOSPHATAEMIA
     Dosage: 500 MG, UNKNOWN (TOTAL DAILY DOSE)
     Route: 048
     Dates: start: 20100806
  2. 405 (LANTHANUM CARBONATE) [Suspect]
     Dosage: 750 MG, UNKNOWN (IMMEDIATELY AFTER MEALS)
     Route: 048
     Dates: start: 20091023, end: 20091117
  3. 405 (LANTHANUM CARBONATE) [Suspect]
     Dosage: 1500 MG, UNKNOWN (TOTAL DAILY DOSE)
     Route: 048
     Dates: start: 20091118, end: 20100903
  4. PRECIPITATED CALCIUM CARBONATE [Concomitant]
     Indication: HYPERPHOSPHATAEMIA
     Dosage: 1.5 G, 1X/DAY:QD
     Route: 048
     Dates: start: 20091023, end: 20100903
  5. ALFAROL [Concomitant]
     Indication: PRODUCT USED FOR UNKNOWN INDICATION
     Dosage: 0.5 ?G, UNKNOWN
     Route: 048
     Dates: start: 20090327
  6. ALFAROL [Concomitant]
     Dosage: 0.5 ?G, UNKNOWN
     Route: 048
     Dates: start: 20100623, end: 20100623
  7. ADALAT CR [Concomitant]
     Indication: PRODUCT USED FOR UNKNOWN INDICATION
     Dosage: 20 MG, UNKNOWN
     Route: 048
  8. BLOPRESS [Concomitant]
     Indication: PRODUCT USED FOR UNKNOWN INDICATION
     Dosage: 8 MG, UNKNOWN
     Route: 048
  9. PANALDINE [Concomitant]
     Indication: THROMBOSIS PROPHYLAXIS
     Dosage: 200 MG, UNKNOWN
     Route: 048
     Dates: start: 20090605
  10. SHAKUYAKUKANZOTO [Concomitant]
     Indication: BACK PAIN
     Dosage: 2 G, UNKNOWN
     Route: 048

REACTIONS (1)
  - Cerebral haemorrhage [Fatal]
